FAERS Safety Report 13725901 (Version 1)
Quarter: 2017Q3

REPORT INFORMATION
  Report Type: Spontaneous
  Country: US (occurrence: US)
  Receive Date: 20170706
  Receipt Date: 20170706
  Transmission Date: 20171127
  Serious: Yes (Life-Threatening, Hospitalization, Other)
  Sender: FDA-Public Use
  Company Number: None

PATIENT
  Age: 1 Year
  Sex: Female
  Weight: 12.15 kg

DRUGS (2)
  1. LEVOCARNITINE. [Concomitant]
     Active Substance: LEVOCARNITINE
  2. DIAZOXIDE 50MG/ML [Suspect]
     Active Substance: DIAZOXIDE
     Indication: HYPERINSULINISM
     Dosage: ?          OTHER DOSE:ML;?
     Route: 048
     Dates: start: 20160906, end: 20161207

REACTIONS (3)
  - Hepatic enzyme increased [None]
  - Hirsutism [None]
  - Neutropenia [None]

NARRATIVE: CASE EVENT DATE: 20161206
